FAERS Safety Report 10171396 (Version 1)
Quarter: 2014Q2

REPORT INFORMATION
  Report Type: Spontaneous
  Country: CA (occurrence: CA)
  Receive Date: 20140514
  Receipt Date: 20140514
  Transmission Date: 20141212
  Serious: Yes (Other)
  Sender: FDA-Public Use
  Company Number: CA-009507513-1405CAN005432

PATIENT
  Age: 73 Year
  Sex: Female

DRUGS (2)
  1. SINEMET CR [Suspect]
     Dosage: 1.0 DOSAGE FORMS, 6 EVERY 1 DAY
     Route: 048
  2. APO LEVOCARB [Suspect]
     Dosage: 1.0 DOSAGE FORMS, 6 EVERY 1 DAY
     Route: 048

REACTIONS (2)
  - Drug effect decreased [Recovered/Resolved]
  - Product substitution issue [Recovered/Resolved]
